FAERS Safety Report 9495614 (Version 1)
Quarter: 2013Q3

REPORT INFORMATION
  Report Type: Spontaneous
  Country: GB (occurrence: GB)
  Receive Date: 20130903
  Receipt Date: 20130903
  Transmission Date: 20140515
  Serious: Yes (Hospitalization)
  Sender: FDA-Public Use
  Company Number: GB-BAUSCH-BL-2013-004873

PATIENT
  Age: 14 Year
  Sex: Male

DRUGS (5)
  1. DEXAMETHASONE [Suspect]
     Indication: PRODUCT USED FOR UNKNOWN INDICATION
     Route: 065
     Dates: start: 20130703
  2. BEVACIZUMAB [Suspect]
     Indication: PRODUCT USED FOR UNKNOWN INDICATION
     Dosage: 450 MG ONCE
     Dates: start: 20130718
  3. TEMOZOLOMIDE [Suspect]
     Dosage: 105 MG ONCE A DAY
     Route: 048
     Dates: start: 20130718
  4. ONDANSETRON [Concomitant]
  5. SULFAMETHOXAZOLE/TRIMETHOPRIM [Concomitant]

REACTIONS (1)
  - Chest pain [Recovered/Resolved]
